FAERS Safety Report 9204634 (Version 1)
Quarter: 2013Q1

REPORT INFORMATION
  Report Type: Spontaneous
  Country: US (occurrence: None)
  Receive Date: 20120709
  Receipt Date: 20120709
  Transmission Date: 20140127
  Serious: No
  Sender: FDA-Public Use
  Company Number: 2012HGS-003501

PATIENT
  Age: 43 Year
  Sex: Female
  Weight: 58.06 kg

DRUGS (6)
  1. BENLYSTA [Suspect]
     Indication: SYSTEMIC LUPUS ERYTHEMATOSUS
     Dosage: 1 IN 28 D
     Route: 041
     Dates: start: 20120406
  2. PLAQUENIL (HYDROXYCHLOROQUINE PHOSPATE) (HYDROXYCHLOROQUINE PHOSPATE) [Concomitant]
  3. PREDNISONE (PREDNISONE) [Concomitant]
  4. CELEXA (CITALOPRAM HYDROBROMIDE) (CITALOPRAM HYDROBROMIDE) [Concomitant]
  5. LORTAB (VICODIN) (PARACETAMOL, HYDROCODONE BITARTRATE) [Concomitant]
  6. TYLENOL (PARACETAMOL) (PARACETAMOL) [Concomitant]

REACTIONS (2)
  - Fatigue [None]
  - Pruritus [None]
